FAERS Safety Report 8501908-8 (Version None)
Quarter: 2012Q3

REPORT INFORMATION
  Report Type: 
  Country: None (occurrence: None)
  Receive Date: 20120711
  Receipt Date: 20120706
  Transmission Date: 20120928
  Serious: Yes (Hospitalization)
  Sender: FDA-Public Use
  Company Number: PHHY2012FR058603

PATIENT
  Sex: Female

DRUGS (5)
  1. CELLCEPT [Suspect]
     Indication: HEART TRANSPLANT
     Dosage: 1000 MG, BID
     Route: 048
     Dates: start: 20110820
  2. RUBOZINC [Concomitant]
  3. VALGANCICLOVIR [Concomitant]
  4. CERTICAN [Suspect]
     Indication: HEART TRANSPLANT
     Dosage: 0.75 MG, BID
     Route: 048
     Dates: end: 20120620
  5. NEORAL [Concomitant]
     Dosage: 150 MG, BID

REACTIONS (3)
  - MOUTH ULCERATION [None]
  - ANAL ULCER [None]
  - PAIN [None]
